FAERS Safety Report 9188054 (Version 1)
Quarter: 2013Q1

REPORT INFORMATION
  Report Type: Spontaneous
  Country: US (occurrence: US)
  Receive Date: 20130325
  Receipt Date: 20130325
  Transmission Date: 20140127
  Serious: No
  Sender: FDA-Public Use
  Company Number: US-MYLANLABS-2013S1000894

PATIENT
  Age: 83 Year
  Sex: Female
  Weight: 53.98 kg

DRUGS (3)
  1. FENTANYL TRANSDERMAL SYSTEM [Suspect]
     Indication: BACK PAIN
     Dosage: CHANGED Q72H
     Route: 062
     Dates: start: 2011
  2. TRAMADOL [Concomitant]
     Indication: PAIN
     Route: 048
  3. LIDODERM PATCH [Concomitant]
     Indication: PAIN
     Route: 062

REACTIONS (1)
  - Drug administration error [Recovered/Resolved]
